FAERS Safety Report 18555915 (Version 2)
Quarter: 2020Q4

REPORT INFORMATION
  Report Type: Report from Study
  Country: FR (occurrence: FR)
  Receive Date: 20201127
  Receipt Date: 20201208
  Transmission Date: 20210114
  Serious: Yes (Hospitalization, Other)
  Sender: FDA-Public Use
  Company Number: FR-EXELIXIS-XL18420035352

PATIENT

DRUGS (4)
  1. XL184 [Suspect]
     Active Substance: CABOZANTINIB
     Indication: CERVIX CARCINOMA
     Dosage: 60 MG, QD
     Route: 048
     Dates: start: 20200701, end: 20200729
  2. LEVOTHYROX [Concomitant]
     Active Substance: LEVOTHYROXINE
     Indication: HYPOTHYROIDISM
     Dosage: UNK
  3. XL184 [Suspect]
     Active Substance: CABOZANTINIB
     Dosage: 40 MG, QD
     Route: 048
     Dates: start: 20200730, end: 20201111
  4. OMEPRAZOLE. [Concomitant]
     Active Substance: OMEPRAZOLE
     Indication: GASTRITIS PROPHYLAXIS
     Dosage: UNK

REACTIONS (2)
  - Abscess drainage [Recovered/Resolved]
  - Perirectal abscess [Recovered/Resolved]

NARRATIVE: CASE EVENT DATE: 20201104
